FAERS Safety Report 9110371 (Version 1)
Quarter: 2013Q1

REPORT INFORMATION
  Report Type: Spontaneous
  Country: US (occurrence: US)
  Receive Date: 20130219
  Receipt Date: 20130219
  Transmission Date: 20140127
  Serious: No
  Sender: FDA-Public Use
  Company Number: US-BRISTOL-MYERS SQUIBB COMPANY-16577108

PATIENT
  Age: 60 Year
  Sex: Female
  Weight: 188 kg

DRUGS (2)
  1. ORENCIA [Suspect]
     Indication: RHEUMATOID ARTHRITIS
     Dosage: 4TH INF:21MAR12 ?LAST INF:16APR12,6MAY12,17APR12?3 VIALS
     Route: 042
     Dates: start: 20120125
  2. METHOTREXATE [Concomitant]

REACTIONS (1)
  - Herpes zoster [Recovered/Resolved]
